FAERS Safety Report 7221388-2 (Version None)
Quarter: 2011Q1

REPORT INFORMATION
  Report Type: 
  Country: None (occurrence: None)
  Receive Date: 20110112
  Receipt Date: 20110105
  Transmission Date: 20110831
  Serious: Yes (Hospitalization)
  Sender: FDA-Public Use
  Company Number: NL-MEDIMMUNE-MEDI-0012142

PATIENT
  Sex: Male
  Weight: 7.2 kg

DRUGS (2)
  1. SYNAGIS [Suspect]
     Route: 030
     Dates: start: 20101229, end: 20101229
  2. SYNAGIS [Suspect]
     Route: 030
     Dates: start: 20100908, end: 20101201

REACTIONS (2)
  - SENSE OF OPPRESSION [None]
  - BRONCHIAL SECRETION RETENTION [None]
